FAERS Safety Report 25191013 (Version 1)
Quarter: 2025Q2

REPORT INFORMATION
  Report Type: Spontaneous
  Country: US (occurrence: US)
  Receive Date: 20250411
  Receipt Date: 20250411
  Transmission Date: 20250717
  Serious: No
  Sender: EISAI
  Company Number: US-Eisai-EC-2025-186768

PATIENT
  Sex: Female

DRUGS (2)
  1. LENVIMA [Suspect]
     Active Substance: LENVATINIB
     Indication: Endometrial cancer
  2. KEYTRUDA [Suspect]
     Active Substance: PEMBROLIZUMAB
     Indication: Endometrial cancer

REACTIONS (6)
  - Thyroid hormones increased [Unknown]
  - Blood pressure increased [Unknown]
  - Dizziness [Unknown]
  - Neuropathy peripheral [Unknown]
  - Screaming [Unknown]
  - Memory impairment [Unknown]
